FAERS Safety Report 12131493 (Version 8)
Quarter: 2016Q3

REPORT INFORMATION
  Report Type: Spontaneous
  Country: US (occurrence: US)
  Receive Date: 20160301
  Receipt Date: 20160916
  Transmission Date: 20161109
  Serious: Yes (Hospitalization, Other)
  Sender: FDA-Public Use
  Company Number: US-PFIZER INC-2016115805

PATIENT
  Age: 56 Year
  Sex: Female
  Weight: 41 kg

DRUGS (1)
  1. LYRICA [Suspect]
     Active Substance: PREGABALIN
     Indication: FIBROMYALGIA
     Dosage: 300 MG, 2X/DAY
     Route: 048

REACTIONS (8)
  - Haemorrhage [Unknown]
  - Nasopharyngitis [Unknown]
  - Pneumonia [Unknown]
  - Myocardial infarction [Unknown]
  - Prescribed overdose [Unknown]
  - Feeding disorder [Unknown]
  - Hypersensitivity [Unknown]
  - Fall [Unknown]
